FAERS Safety Report 6986670-2 (Version None)
Quarter: 2010Q3

REPORT INFORMATION
  Report Type: 
  Country: None (occurrence: None)
  Receive Date: 20100915
  Receipt Date: 20090720
  Transmission Date: 20110219
  Serious: No
  Sender: FDA-Public Use
  Company Number: US-WYE-H10229709

PATIENT
  Sex: Female

DRUGS (2)
  1. PRISTIQ [Suspect]
     Indication: DEPRESSION
     Route: 048
     Dates: start: 20081201
  2. PRISTIQ [Suspect]
     Route: 048
     Dates: end: 20090718

REACTIONS (5)
  - AMNESIA [None]
  - DRUG WITHDRAWAL SYNDROME [None]
  - EYE PAIN [None]
  - GLAUCOMA [None]
  - HEADACHE [None]
